FAERS Safety Report 8560835-0 (Version None)
Quarter: 2012Q3

REPORT INFORMATION
  Report Type: 
  Country: None (occurrence: None)
  Receive Date: 20120727
  Receipt Date: 20120727
  Transmission Date: 20120928
  Serious: Yes (Hospitalization)
  Sender: FDA-Public Use
  Company Number: None

PATIENT
  Age: 77 Year
  Sex: Female
  Weight: 73.5 kg

DRUGS (17)
  1. RANOLAZINE [Suspect]
     Indication: ANGINA PECTORIS
     Dosage: 500MG BID PO RECENT
     Route: 048
  2. BUMEX [Concomitant]
  3. INSULIN [Concomitant]
  4. NITROGLYCERIN [Concomitant]
  5. GABAPENTIN [Concomitant]
  6. LIDOCAINE [Concomitant]
  7. MIRALAX [Concomitant]
  8. LEVOFLOXACIN [Concomitant]
  9. ALLOPURINOL [Concomitant]
  10. METOPROLOL TARTRATE [Concomitant]
  11. ASPIRIN [Concomitant]
  12. LIPITOR [Concomitant]
  13. AMIODARONE HCL [Concomitant]
  14. COLACE [Concomitant]
  15. SYNTHROID [Concomitant]
  16. CALCIUM + VIT D [Concomitant]
  17. AMLODIPINE [Concomitant]

REACTIONS (4)
  - RENAL FAILURE ACUTE [None]
  - DEHYDRATION [None]
  - TREMOR [None]
  - ASTHENIA [None]
